FAERS Safety Report 10792297 (Version 1)
Quarter: 2015Q1

REPORT INFORMATION
  Report Type: Spontaneous
  Country: TW (occurrence: None)
  Receive Date: 20150211
  Receipt Date: 20150211
  Transmission Date: 20150721
  Serious: Yes (Hospitalization)
  Sender: FDA-Public Use
  Company Number: FK201500629

PATIENT
  Age: 49 Year
  Sex: Female

DRUGS (3)
  1. DIPHENHYDRAMINE INJECTION (MANUFACTURER UNKNOWN) (DIPHENHYDRAMINE [Suspect]
     Active Substance: DIPHENHYDRAMINE
     Indication: DRUG DEPENDENCE
     Route: 030
  2. DIPHENHYDRAMINE INJECTION (MANUFACTURER UNKNOWN) (DIPHENHYDRAMINE [Suspect]
     Active Substance: DIPHENHYDRAMINE
     Indication: INSOMNIA
     Route: 030
  3. DIPHENHYDRAMINE INJECTION (MANUFACTURER UNKNOWN) (DIPHENHYDRAMINE [Suspect]
     Active Substance: DIPHENHYDRAMINE
     Indication: URTICARIA
     Route: 030

REACTIONS (11)
  - Oedema peripheral [None]
  - Injection site reaction [None]
  - Gait disturbance [None]
  - Injection site warmth [None]
  - Drug dependence [None]
  - Muscle necrosis [None]
  - Major depression [None]
  - Drug withdrawal syndrome [None]
  - Electrocardiogram QT prolonged [None]
  - Injection site pain [None]
  - Injection site swelling [None]
